FAERS Safety Report 13161352 (Version 1)
Quarter: 2017Q1

REPORT INFORMATION
  Report Type: Spontaneous
  Country: US (occurrence: US)
  Receive Date: 20170130
  Receipt Date: 20170130
  Transmission Date: 20170428
  Serious: Yes (Other)
  Sender: FDA-Public Use
  Company Number: US-ASTRAZENECA-2017SE08508

PATIENT
  Age: 809 Month
  Sex: Female

DRUGS (3)
  1. FASLODEX [Suspect]
     Active Substance: FULVESTRANT
     Route: 030
     Dates: start: 20161002
  2. ELIQUISE [Concomitant]
  3. IBRANCE [Suspect]
     Active Substance: PALBOCICLIB
     Route: 048
     Dates: start: 20161002

REACTIONS (3)
  - Pulmonary embolism [Unknown]
  - Flushing [Unknown]
  - Burning sensation [Unknown]

NARRATIVE: CASE EVENT DATE: 201611
